FAERS Safety Report 21709486 (Version 2)
Quarter: 2023Q1

REPORT INFORMATION
  Report Type: Report from Study
  Country: CA (occurrence: CA)
  Receive Date: 20221210
  Receipt Date: 20230218
  Transmission Date: 20230417
  Serious: Yes (Other)
  Sender: FDA-Public Use
  Company Number: CA-002147023-NVSC2020CA306465

PATIENT
  Age: 18 Year
  Sex: Male

DRUGS (1)
  1. AIMOVIG [Suspect]
     Active Substance: ERENUMAB-AOOE
     Indication: Migraine
     Dosage: 70 MILLIGRAM, UNK
     Route: 065
     Dates: start: 20191108

REACTIONS (4)
  - Angina pectoris [Unknown]
  - Illness [Unknown]
  - Therapeutic product effect decreased [Unknown]
  - Migraine [Unknown]
